FAERS Safety Report 11853096 (Version 12)
Quarter: 2016Q2

REPORT INFORMATION
  Report Type: Report from Study
  Country: BE (occurrence: BE)
  Receive Date: 20151218
  Receipt Date: 20160627
  Transmission Date: 20160815
  Serious: Yes (Life-Threatening, Hospitalization, Disabling)
  Sender: FDA-Public Use
  Company Number: BE-ABBVIE-15P-013-1519672-00

PATIENT
  Age: 74 Year
  Sex: Male
  Weight: 66 kg

DRUGS (15)
  1. DUODOPA [Suspect]
     Active Substance: CARBIDOPA\LEVODOPA
     Indication: PARKINSON^S DISEASE
     Dosage: UNKNOWN
     Route: 050
     Dates: start: 20110617, end: 20110622
  2. DUODOPA [Suspect]
     Active Substance: CARBIDOPA\LEVODOPA
     Route: 050
     Dates: end: 20160127
  3. DUODOPA [Suspect]
     Active Substance: CARBIDOPA\LEVODOPA
     Dosage: AM DOSE=3.7ML,CD=5.9ML/H FOR 16HRS AND ED=3.2ML
     Route: 050
     Dates: start: 201512
  4. PANTOMED [Concomitant]
     Active Substance: DEXPANTHENOL
     Indication: PRODUCT USED FOR UNKNOWN INDICATION
  5. DUODOPA [Suspect]
     Active Substance: CARBIDOPA\LEVODOPA
     Dosage: AM=8ML; CD=4.1ML/HR DURING 16HRS; ED=2.5ML
     Route: 050
     Dates: start: 20110622, end: 20110630
  6. DUODOPA [Suspect]
     Active Substance: CARBIDOPA\LEVODOPA
     Dosage: AM=3ML; CD=4.7ML/H FOR 16 HRS; ED=2.2ML
     Route: 050
     Dates: start: 20160304, end: 20160606
  7. DUODOPA [Suspect]
     Active Substance: CARBIDOPA\LEVODOPA
     Dosage: AM=3.7ML; CD=7.1ML/HR DURING 16HRS; ED=3.7ML; ND=6ML/HR DURING 8HRS
     Route: 050
     Dates: start: 20140818, end: 20151214
  8. DUODOPA [Suspect]
     Active Substance: CARBIDOPA\LEVODOPA
     Dosage: AM=0.4ML; CD=5.5ML/HR DURING 16HRS; ED=2.2ML; ND=5ML/HR DURING
     Route: 050
     Dates: start: 20160127, end: 20160304
  9. DUODOPA [Suspect]
     Active Substance: CARBIDOPA\LEVODOPA
     Dosage: AM=3.7ML; CD=5.9ML/HR DURING 16HRS; ED=3.7ML; ND=6ML/HR DURING 8HRS
     Route: 050
     Dates: start: 20151214
  10. ASAFLOW [Concomitant]
     Active Substance: ASPIRIN
     Indication: PRODUCT USED FOR UNKNOWN INDICATION
  11. MIRAPEXIN [Concomitant]
     Active Substance: PRAMIPEXOLE
     Indication: PRODUCT USED FOR UNKNOWN INDICATION
     Dosage: 2 TABLETS OF 0.26 MILIGRAM + 1 TABLET OF 1.5 MILIGRAM
  12. SEDINAL [Concomitant]
     Indication: PRODUCT USED FOR UNKNOWN INDICATION
  13. DUODOPA [Suspect]
     Active Substance: CARBIDOPA\LEVODOPA
     Dosage: DOSES CONTINUOUSLY MONITORED AND ADAPTED.
     Route: 050
     Dates: start: 20110630, end: 20140818
  14. DUODOPA [Suspect]
     Active Substance: CARBIDOPA\LEVODOPA
     Dosage: AM= 0.4 LM; CD= 6 ML/H DURING 16 HRS; ND= 5 ML/H DURING 8 HRS;ED= 2.4 ML
     Route: 050
     Dates: start: 20160606
  15. DAFLON [Concomitant]
     Active Substance: DIOSMIN\HESPERIDIN
     Indication: PRODUCT USED FOR UNKNOWN INDICATION

REACTIONS (12)
  - Pneumonia [Unknown]
  - Asthenia [Unknown]
  - Duodenal ulcer [Unknown]
  - Gastrointestinal haemorrhage [Unknown]
  - Medical device removal [Unknown]
  - Fall [Unknown]
  - Anaemia [Unknown]
  - Incorrect route of drug administration [Unknown]
  - Rib fracture [Unknown]
  - Bronchitis [Unknown]
  - Device dislocation [Unknown]
  - Agitation [Unknown]

NARRATIVE: CASE EVENT DATE: 201512
